FAERS Safety Report 21623254 (Version 3)
Quarter: 2023Q1

REPORT INFORMATION
  Report Type: Report from Study
  Country: US (occurrence: US)
  Receive Date: 20221121
  Receipt Date: 20230221
  Transmission Date: 20230417
  Serious: No
  Sender: FDA-Public Use
  Company Number: US-002147023-NVSC2022US261255

PATIENT
  Sex: Female

DRUGS (1)
  1. COSENTYX [Suspect]
     Active Substance: SECUKINUMAB
     Indication: Psoriasis
     Dosage: 150 MG, QW ((ONCE A WEEK FOR 5 WEEKS, THEN ONCE EVERY 4 WEEKS))
     Route: 058

REACTIONS (2)
  - Influenza [Unknown]
  - Nasal congestion [Unknown]
